FAERS Safety Report 23797177 (Version 1)
Quarter: 2024Q2

REPORT INFORMATION
  Report Type: Spontaneous
  Country: LU (occurrence: LU)
  Receive Date: 20240430
  Receipt Date: 20240430
  Transmission Date: 20240715
  Serious: Yes (Hospitalization)
  Sender: FDA-Public Use
  Company Number: LU-CELLTRION INC.-2024LU009710

PATIENT

DRUGS (1)
  1. INFLIXIMAB [Suspect]
     Active Substance: INFLIXIMAB
     Indication: Crohn^s disease
     Dosage: 3RD COURSE, 266.88 MG 1 CYCLE
     Route: 051
     Dates: start: 20210924, end: 20210924

REACTIONS (3)
  - Laryngospasm [Recovered/Resolved]
  - Respiratory disorder [Recovered/Resolved]
  - Overdose [Unknown]

NARRATIVE: CASE EVENT DATE: 20210924
